FAERS Safety Report 23260807 (Version 2)
Quarter: 2023Q4

REPORT INFORMATION
  Report Type: Spontaneous
  Country: CA (occurrence: CA)
  Receive Date: 20231205
  Receipt Date: 20231227
  Transmission Date: 20240109
  Serious: Yes (Other)
  Sender: FDA-Public Use
  Company Number: CA-CELLTRION INC.-2023CA022205

PATIENT

DRUGS (4)
  1. INFLECTRA [Suspect]
     Active Substance: INFLIXIMAB-DYYB
     Indication: Crohn^s disease
     Dosage: 635 MG,WK 0 INDUCTION DOSE, 5MG/KG,EVERY 8 WKS, INDUCTION WEEK 0,2,6 THEN MAINTENANCE EVERY 8 WKS
     Route: 042
     Dates: start: 20231108
  2. INFLECTRA [Suspect]
     Active Substance: INFLIXIMAB-DYYB
     Dosage: 635 MG,WK 0 INDUCTION DOSE, 5MG/KG,EVERY 8 WKS, INDUCTION WEEK 0,2,6 THEN MAINTENANCE EVERY 8 WKS(63
     Route: 042
     Dates: start: 20231124
  3. INFLECTRA [Suspect]
     Active Substance: INFLIXIMAB-DYYB
     Dosage: 5 MG/KG EVERY 8 WEEKS, INDUCTION WEEK 0, 2, 6 THEN MAINTENANCE EVERY 8 WEEKS (640 MG AFTER 4 WEEK (W
     Route: 042
     Dates: start: 20231218
  4. CORTISONE [Concomitant]
     Active Substance: CORTISONE
     Dosage: UNK

REACTIONS (5)
  - Nephrolithiasis [Recovering/Resolving]
  - Heart rate decreased [Unknown]
  - Blood pressure increased [Unknown]
  - Nasopharyngitis [Recovering/Resolving]
  - Frequent bowel movements [Not Recovered/Not Resolved]

NARRATIVE: CASE EVENT DATE: 20231101
